FAERS Safety Report 9629227 (Version 1)
Quarter: 2013Q4

REPORT INFORMATION
  Report Type: Report from Study
  Country: US (occurrence: US)
  Receive Date: 20131017
  Receipt Date: 20131017
  Transmission Date: 20140711
  Serious: Yes (Death)
  Sender: FDA-Public Use
  Company Number: US-ROCHE-1288942

PATIENT
  Sex: Female

DRUGS (8)
  1. AVASTIN [Suspect]
     Indication: RECTAL CANCER METASTATIC
     Route: 042
     Dates: end: 20130731
  2. AVASTIN [Suspect]
     Indication: METASTASES TO LIVER
  3. CATHFLO ACTIVASE [Suspect]
     Indication: RECTAL CANCER METASTATIC
     Route: 065
     Dates: start: 20130731
  4. CATHFLO ACTIVASE [Suspect]
     Indication: METASTASES TO LIVER
  5. ACETAMINOPHEN [Concomitant]
     Dosage: GIVEN TWICE
     Route: 048
  6. OXALIPLATIN [Concomitant]
     Route: 042
  7. SODIUM CHLORIDE [Concomitant]
     Dosage: 85.5ML
     Route: 042
  8. VANCOMYCIN [Concomitant]

REACTIONS (13)
  - Cardiopulmonary failure [Fatal]
  - Septic shock [Fatal]
  - Disease progression [Fatal]
  - Peritonitis bacterial [Fatal]
  - Hypoxia [Fatal]
  - Respiratory failure [Fatal]
  - Metabolic acidosis [Fatal]
  - Renal failure acute [Fatal]
  - Acute hepatic failure [Fatal]
  - Mental status changes [Fatal]
  - Coagulopathy [Fatal]
  - Hyponatraemia [Fatal]
  - Rectal cancer metastatic [Fatal]
